FAERS Safety Report 6874727-6 (Version None)
Quarter: 2010Q3

REPORT INFORMATION
  Report Type: 
  Country: None (occurrence: None)
  Receive Date: 20100723
  Receipt Date: 20100714
  Transmission Date: 20110219
  Serious: Yes (Other)
  Sender: FDA-Public Use
  Company Number: 640768

PATIENT
  Age: 68 Year
  Sex: Female
  Weight: 52.6173 kg

DRUGS (6)
  1. CARBOPLATIN [Suspect]
     Indication: PRODUCT USED FOR UNKNOWN INDICATION
     Dosage: 535 MG MILLIGRAM(S), 21 DAY;
  2. PACLITAXEL [Suspect]
     Indication: PRODUCT USED FOR UNKNOWN INDICATION
     Dosage: 267 MG MILLIGRAM(S), 21 DAYS;
  3. DEXAMETHASONE [Concomitant]
  4. DIPHENHYDRAMINE [Concomitant]
  5. ONDANSETRON [Concomitant]
  6. RANITIDINE [Concomitant]

REACTIONS (2)
  - FLUSHING [None]
  - HOT FLUSH [None]
